FAERS Safety Report 4741686-1 (Version None)
Quarter: 2005Q3

REPORT INFORMATION
  Report Type: 
  Country: None (occurrence: None)
  Receive Date: 20050808
  Receipt Date: 20050720
  Transmission Date: 20060218
  Serious: Yes (Hospitalization)
  Sender: FDA-Public Use
  Company Number: EWC050745089

PATIENT
  Age: 6 Year
  Sex: Male
  Weight: 30 kg

DRUGS (4)
  1. CEFACLOR [Suspect]
     Indication: RESPIRATORY TRACT INFECTION
     Dates: start: 20050415, end: 20050415
  2. MYOLASTAN                (TETRAZEPAM) [Concomitant]
  3. SRILANE                    (IDROCILAMIDE) [Concomitant]
  4. JUNIFEN               (IBUPROFEN) [Concomitant]

REACTIONS (1)
  - ANAPHYLACTIC SHOCK [None]
